FAERS Safety Report 8114994-4 (Version None)
Quarter: 2012Q1

REPORT INFORMATION
  Report Type: 
  Country: None (occurrence: None)
  Receive Date: 20120206
  Receipt Date: 20120123
  Transmission Date: 20120608
  Serious: Yes (Hospitalization, Other)
  Sender: FDA-Public Use
  Company Number: GB-UCBSA-037785

PATIENT
  Age: 66 Year
  Sex: Female
  Weight: 59 kg

DRUGS (5)
  1. METHOTREXATE [Concomitant]
     Indication: RHEUMATOID ARTHRITIS
     Dates: start: 20090601, end: 20110601
  2. FOLIC ACID [Concomitant]
     Dosage: 10 MG
  3. NAPROXEN [Concomitant]
     Dosage: 500 MG
  4. CERTOLIZUMAB [Suspect]
     Indication: RHEUMATOID ARTHRITIS
     Route: 058
     Dates: start: 20110415, end: 20110601
  5. OMEPRAZOLE [Concomitant]
     Dosage: 20 MG

REACTIONS (1)
  - PULMONARY FIBROSIS [None]
